FAERS Safety Report 6010994-9 (Version None)
Quarter: 2008Q4

REPORT INFORMATION
  Report Type: 
  Country: None (occurrence: None)
  Receive Date: 20081218
  Receipt Date: 20081217
  Transmission Date: 20090506
  Serious: Yes (Other)
  Sender: FDA-Public Use
  Company Number: B0550821A

PATIENT
  Age: 55 Year
  Sex: Male

DRUGS (7)
  1. ZEFIX [Suspect]
     Indication: DRUG USE FOR UNKNOWN INDICATION
     Route: 048
  2. ALDACTONE [Concomitant]
     Route: 048
  3. FUROSEMIDE [Concomitant]
     Route: 065
  4. RABEPRAZOLE SODIUM [Concomitant]
     Route: 048
  5. LIVACT [Concomitant]
     Route: 048
  6. LACTULOSE [Concomitant]
     Route: 048
  7. LENDORMIN [Concomitant]
     Route: 048

REACTIONS (1)
  - CALCULUS URETERIC [None]
